FAERS Safety Report 9494649 (Version 1)
Quarter: 2013Q3

REPORT INFORMATION
  Report Type: Spontaneous
  Country: US (occurrence: None)
  Receive Date: 20130830
  Receipt Date: 20130830
  Transmission Date: 20140515
  Serious: No
  Sender: FDA-Public Use
  Company Number: None

PATIENT
  Age: 12 Year
  Sex: Male
  Weight: 55.79 kg

DRUGS (5)
  1. ZYRTEC [Suspect]
     Indication: HYPERSENSITIVITY
     Dosage: 1   1X A DAY  MOUTH
     Route: 048
     Dates: start: 201308, end: 20130812
  2. ZYRTEC [Suspect]
     Indication: ASTHMA
     Dosage: 1   1X A DAY  MOUTH
     Route: 048
     Dates: start: 201308, end: 20130812
  3. FLOVENT [Concomitant]
  4. ALBUTERAL [Concomitant]
  5. FLONASE [Concomitant]

REACTIONS (1)
  - Pruritus [None]
